FAERS Safety Report 5803936-X (Version None)
Quarter: 2008Q3

REPORT INFORMATION
  Report Type: 
  Country: None (occurrence: None)
  Receive Date: 20080708
  Receipt Date: 20080626
  Transmission Date: 20090109
  Serious: Yes (Hospitalization)
  Sender: FDA-Public Use
  Company Number: FR-PFIZER INC-2008054533

PATIENT
  Age: 83 Year
  Sex: Female

DRUGS (11)
  1. PREDNISONE TAB [Suspect]
     Route: 048
  2. ZOLOFT [Suspect]
     Dosage: TEXT:1 DOSAGE FORM-FREQ:EVERY DAY
     Route: 048
  3. ALDACTAZINE [Suspect]
     Dosage: TEXT:1 DOSAGE FORM-FREQ:EVERY DAY
     Route: 048
  4. PANTOPRAZOLE SODIUM [Suspect]
     Route: 048
  5. PRITOR [Concomitant]
     Route: 048
  6. POTASSIUM CHLORIDE [Concomitant]
     Route: 048
  7. ZOPICLONE [Concomitant]
     Route: 048
  8. CALCIDOSE [Concomitant]
     Route: 048
  9. INNOHEP [Concomitant]
  10. ASPEGIC 325 [Concomitant]
  11. ACTONEL [Concomitant]

REACTIONS (12)
  - ANOREXIA [None]
  - ASTHENIA [None]
  - BLOOD CHLORIDE DECREASED [None]
  - BLOOD PRESSURE SYSTOLIC INCREASED [None]
  - CONFUSIONAL STATE [None]
  - FALL [None]
  - GENERAL PHYSICAL HEALTH DETERIORATION [None]
  - HEAD INJURY [None]
  - HYPONATRAEMIA [None]
  - NAUSEA [None]
  - PERIORBITAL HAEMATOMA [None]
  - VOMITING [None]
